FAERS Safety Report 20447307 (Version 4)
Quarter: 2022Q3

REPORT INFORMATION
  Report Type: Report from Study
  Country: CA (occurrence: CA)
  Receive Date: 20220209
  Receipt Date: 20220822
  Transmission Date: 20221026
  Serious: Yes (Hospitalization)
  Sender: FDA-Public Use
  Company Number: CA-JNJFOC-20220213311

PATIENT
  Age: 63 Year
  Sex: Female
  Weight: 50 kg

DRUGS (1)
  1. REMICADE [Suspect]
     Active Substance: INFLIXIMAB
     Indication: Crohn^s disease
     Dosage: ON 30-MAR-2022, THE PATIENT COMPLETED HER PARTIAL MAYO SURVEY AND RECEIVED HER 88TH INJECTION OF INF
     Route: 042
     Dates: start: 20071016

REACTIONS (9)
  - Cardiac disorder [Unknown]
  - Pancreatitis [Recovering/Resolving]
  - Clostridium difficile infection [Recovering/Resolving]
  - Crohn^s disease [Recovering/Resolving]
  - Tachycardia [Recovering/Resolving]
  - Poor venous access [Unknown]
  - Large intestine polyp [Unknown]
  - Urinary tract infection [Recovering/Resolving]
  - Cystitis [Unknown]

NARRATIVE: CASE EVENT DATE: 20220101
